FAERS Safety Report 19785578 (Version 1)
Quarter: 2021Q3

REPORT INFORMATION
  Report Type: Spontaneous
  Country: US (occurrence: US)
  Receive Date: 20210903
  Receipt Date: 20210903
  Transmission Date: 20211014
  Serious: Yes (Other)
  Sender: FDA-Public Use
  Company Number: US-ASTRAZENECA-2021A704247

PATIENT
  Sex: Male
  Weight: 79.4 kg

DRUGS (1)
  1. SEROQUEL [Suspect]
     Active Substance: QUETIAPINE FUMARATE
     Route: 048

REACTIONS (4)
  - Ill-defined disorder [Unknown]
  - Unevaluable event [Unknown]
  - Catatonia [Unknown]
  - Drug ineffective [Unknown]
